FAERS Safety Report 7760940-2 (Version None)
Quarter: 2011Q3

REPORT INFORMATION
  Report Type: 
  Country: None (occurrence: None)
  Receive Date: 20110920
  Receipt Date: 20110906
  Transmission Date: 20111222
  Serious: Yes (Disabling)
  Sender: FDA-Public Use
  Company Number: GB-RANBAXY-2007RR-09594

PATIENT
  Age: 56 Year
  Sex: Female

DRUGS (12)
  1. AMLODIPINE [Concomitant]
     Indication: PRODUCT USED FOR UNKNOWN INDICATION
     Dosage: UNK
     Route: 065
     Dates: start: 20060118
  2. TRAMADOL HCL [Suspect]
     Indication: POSTOPERATIVE ANALGESIA
     Dosage: 100 MG, QD
     Route: 048
     Dates: start: 20070412, end: 20070430
  3. ACETAMINPHEN AND CODEINE PHOSPHATE [Suspect]
     Indication: ARTHRALGIA
     Dosage: 2 DF, QID
     Route: 048
     Dates: start: 20011112
  4. SIMVASTATIN [Concomitant]
     Indication: PRODUCT USED FOR UNKNOWN INDICATION
     Dosage: UNK
     Route: 065
     Dates: start: 20060605
  5. BENDROFLUMETHIAZIDE [Concomitant]
     Indication: PRODUCT USED FOR UNKNOWN INDICATION
     Dosage: UNK
     Route: 065
     Dates: start: 20040707
  6. OXYCONTIN [Suspect]
     Dosage: 40 MG, BID
     Route: 048
     Dates: end: 20070630
  7. FLUOXETINE [Suspect]
     Indication: DEPRESSION
     Dosage: 40 MG, QD
     Route: 048
     Dates: start: 20010510
  8. RAMIPRIL [Concomitant]
     Indication: PRODUCT USED FOR UNKNOWN INDICATION
     Dosage: UNK
     Route: 065
     Dates: start: 20040803
  9. OXYCONTIN [Suspect]
     Indication: POSTOPERATIVE ANALGESIA
     Dosage: 20 MG, BID
     Route: 065
     Dates: start: 20070412
  10. OXYCONTIN [Suspect]
     Dosage: 80 MG, BID
     Route: 048
  11. LANSOPRAZOLE [Concomitant]
     Indication: PRODUCT USED FOR UNKNOWN INDICATION
     Dosage: UNK
     Route: 065
     Dates: start: 20000203
  12. DICLOFENAC SODIUM [Concomitant]
     Indication: PRODUCT USED FOR UNKNOWN INDICATION
     Dosage: UNK
     Route: 065

REACTIONS (3)
  - MYOCLONUS [None]
  - HALLUCINATION [None]
  - DRUG INTERACTION [None]
